FAERS Safety Report 15857812 (Version 1)
Quarter: 2019Q1

REPORT INFORMATION
  Report Type: Spontaneous
  Country: US (occurrence: US)
  Receive Date: 20190123
  Receipt Date: 20190123
  Transmission Date: 20190417
  Serious: Yes (Other)
  Sender: FDA-Public Use
  Company Number: None

PATIENT
  Age: 37 Year
  Sex: Female
  Weight: 63.9 kg

DRUGS (6)
  1. ORILISSA [Suspect]
     Active Substance: ELAGOLIX SODIUM
     Indication: DYSMENORRHOEA
     Route: 048
     Dates: start: 20181112, end: 20190108
  2. ORILISSA [Suspect]
     Active Substance: ELAGOLIX SODIUM
     Indication: DYSPAREUNIA
     Route: 048
     Dates: start: 20181112, end: 20190108
  3. MIRENA [Concomitant]
     Active Substance: LEVONORGESTREL
     Dates: start: 20160901
  4. CYMBALTA [Concomitant]
     Active Substance: DULOXETINE HYDROCHLORIDE
  5. IBUPROFEN 800MG [Concomitant]
     Active Substance: IBUPROFEN
     Dates: start: 20181011
  6. ORILISSA [Suspect]
     Active Substance: ELAGOLIX SODIUM
     Indication: PELVIC PAIN
     Route: 048
     Dates: start: 20181112, end: 20190108

REACTIONS (7)
  - Pelvic pain [None]
  - Dyspareunia [None]
  - Diarrhoea [None]
  - Motor dysfunction [None]
  - Fatigue [None]
  - Hypomenorrhoea [None]
  - Headache [None]

NARRATIVE: CASE EVENT DATE: 20181204
